FAERS Safety Report 7525011-9 (Version None)
Quarter: 2011Q2

REPORT INFORMATION
  Report Type: 
  Country: None (occurrence: None)
  Receive Date: 20110526
  Receipt Date: 20110512
  Transmission Date: 20111010
  Serious: Yes (Hospitalization)
  Sender: FDA-Public Use
  Company Number: 17137-2011-00009

PATIENT
  Age: 11 Year
  Sex: Male
  Weight: 36 kg

DRUGS (1)
  1. STAY SAFE 1.5% DEX LM/LC 6 PAK [Suspect]
     Indication: GLOMERULONEPHRITIS CHRONIC
     Dosage: 4 EXCHANGES NIGHTLY
     Dates: start: 20110506

REACTIONS (2)
  - PERITONITIS [None]
  - PERITONEAL EFFLUENT ABNORMAL [None]
